FAERS Safety Report 9879083 (Version 2)
Quarter: 2014Q1

REPORT INFORMATION
  Report Type: Spontaneous
  Country: US (occurrence: US)
  Receive Date: 20140206
  Receipt Date: 20140206
  Transmission Date: 20141002
  Serious: No
  Sender: FDA-Public Use
  Company Number: US-ALLERGAN-1313536US

PATIENT
  Age: 51 Year
  Sex: Female

DRUGS (5)
  1. BOTOX [Suspect]
     Indication: FACIAL SPASM
     Dosage: UNK UNK, SINGLE
     Route: 030
     Dates: start: 20130827, end: 20130827
  2. TEGRETOL [Concomitant]
     Indication: MUSCLE SPASMS
     Dosage: UNK UNK, PRN
     Route: 048
  3. EPIPEN [Concomitant]
     Indication: ARTHROPOD STING
  4. VITAMINS                           /00067501/ [Concomitant]
     Indication: PRODUCT USED FOR UNKNOWN INDICATION
  5. TERBINAFINE [Concomitant]
     Indication: FUNGAL INFECTION
     Dosage: 250 MG, QD
     Route: 048
     Dates: end: 20130828

REACTIONS (14)
  - Dizziness [Unknown]
  - Nausea [Unknown]
  - Pruritus [Unknown]
  - Urticaria [Recovering/Resolving]
  - Eye swelling [Recovering/Resolving]
  - Swollen tongue [Recovering/Resolving]
  - Dysarthria [Unknown]
  - Ageusia [Unknown]
  - Swelling [Unknown]
  - Contusion [Unknown]
  - Local swelling [Not Recovered/Not Resolved]
  - Sensitivity to weather change [Unknown]
  - Dysphagia [Not Recovered/Not Resolved]
  - Hypersensitivity [Unknown]
